FAERS Safety Report 22043776 (Version 1)
Quarter: 2023Q1

REPORT INFORMATION
  Report Type: Spontaneous
  Country: US (occurrence: US)
  Receive Date: 20230228
  Receipt Date: 20230228
  Transmission Date: 20230418
  Serious: Yes (Other)
  Sender: FDA-Public Use
  Company Number: US-JNJFOC-20230252591

PATIENT
  Age: 83 Year
  Sex: Female
  Weight: 79.4 kg

DRUGS (3)
  1. XARELTO [Suspect]
     Active Substance: RIVAROXABAN
     Indication: Thrombosis
     Route: 048
  2. TREPROSTINIL SODIUM [Suspect]
     Active Substance: TREPROSTINIL SODIUM
     Indication: Pulmonary arterial hypertension
     Dosage: 60 UG (10 BREATHS) , CONCENTRATION 0.6 MG/ML
     Route: 055
     Dates: start: 20121015
  3. TADALAFIL [Concomitant]
     Active Substance: TADALAFIL

REACTIONS (7)
  - Eye haemorrhage [Not Recovered/Not Resolved]
  - Haemorrhage [Unknown]
  - Macular degeneration [Unknown]
  - Cough [Unknown]
  - Feeling abnormal [Unknown]
  - Palpitations [Unknown]
  - Fatigue [Unknown]
